FAERS Safety Report 5455910-3 (Version None)
Quarter: 2007Q3

REPORT INFORMATION
  Report Type: 
  Country: None (occurrence: None)
  Receive Date: 20070918
  Receipt Date: 20061114
  Transmission Date: 20080115
  Serious: No
  Sender: FDA-Public Use
  Company Number: US-ASTRAZENECA-2006UW24212

PATIENT
  Age: 54 Year
  Sex: Female
  Weight: 68 kg

DRUGS (4)
  1. SEROQUEL [Suspect]
     Indication: SCHIZOPHRENIA
     Route: 048
     Dates: end: 20050101
  2. SEROQUEL [Suspect]
     Indication: BIPOLAR DISORDER
     Route: 048
     Dates: end: 20050101
  3. ASTHMA MEDICATION [Concomitant]
  4. OSTEOARTHRITIS MEDICATION [Concomitant]

REACTIONS (3)
  - JOINT STIFFNESS [None]
  - PARANOIA [None]
  - WEIGHT INCREASED [None]
